FAERS Safety Report 25962122 (Version 2)
Quarter: 2025Q4

REPORT INFORMATION
  Report Type: Spontaneous
  Country: EU (occurrence: EU)
  Receive Date: 20251027
  Receipt Date: 20251029
  Transmission Date: 20260118
  Serious: Yes (Other)
  Sender: MYLAN
  Company Number: EU-ASTRAZENECA-202509GLO017442ES

PATIENT
  Age: 50 Year
  Sex: Female

DRUGS (1)
  1. TAMOXIFEN [Suspect]
     Active Substance: TAMOXIFEN
     Indication: Inflammatory carcinoma of the breast
     Dosage: 20 MILLIGRAM, QD
     Dates: start: 202111

REACTIONS (2)
  - Malignant neoplasm progression [Unknown]
  - PIK3CA-activated mutation [Unknown]
